FAERS Safety Report 11795337 (Version 1)
Quarter: 2015Q4

REPORT INFORMATION
  Report Type: Spontaneous
  Country: US (occurrence: US)
  Receive Date: 20151202
  Receipt Date: 20151202
  Transmission Date: 20160305
  Serious: Yes (Hospitalization, Other)
  Sender: FDA-Public Use
  Company Number: US-PFIZER INC-2015407692

PATIENT
  Age: 36 Year
  Sex: Female
  Weight: 99.77 kg

DRUGS (15)
  1. FLOLAN [Suspect]
     Active Substance: EPOPROSTENOL SODIUM
     Dosage: UNK
     Dates: start: 20120131
  2. FLOLAN [Suspect]
     Active Substance: EPOPROSTENOL SODIUM
     Dosage: 2 NG/KG/MIN, CONCENTRATION AT 5000 NG/ML AND RATE OF 58 ML/DAY
     Dates: start: 20120131
  3. FLOLAN [Suspect]
     Active Substance: EPOPROSTENOL SODIUM
     Dosage: UNK
     Dates: start: 20120131
  4. FLOLAN [Suspect]
     Active Substance: EPOPROSTENOL SODIUM
     Dosage: UNK (24 NG/KG/MIN: CONCENTRATION 45,000 NG/ML: PUMP RATE 77 ML/DAY, VIAL STRENGTH 1.5 MG,)
     Route: 042
  5. SILDENAFIL CITRATE. [Suspect]
     Active Substance: SILDENAFIL CITRATE
     Dosage: UNK
  6. FLOLAN [Suspect]
     Active Substance: EPOPROSTENOL SODIUM
     Dosage: UNK (24 NG/KG/MIN CONTINOUS: CONCENTRATION 45,000 NG/ML: VIAL STRENGTH 1.5 MG, PUMP RATE 77 ML/DAY,)
     Route: 042
     Dates: start: 20120131
  7. FLOLAN [Suspect]
     Active Substance: EPOPROSTENOL SODIUM
     Dosage: UNK (24 NG/KG/MIN: CONCENTRATION 45,000 NG/ML: PUMP RATE 77 ML/DAY, VIAL STRENGTH 1.5 MG,)
  8. REVATIO [Concomitant]
     Active Substance: SILDENAFIL CITRATE
     Dosage: UNK
  9. FLOLAN [Suspect]
     Active Substance: EPOPROSTENOL SODIUM
     Dosage: UNK
     Dates: start: 20120131
  10. FLOLAN [Suspect]
     Active Substance: EPOPROSTENOL SODIUM
     Dosage: UNK
     Dates: start: 20120131
  11. FLOLAN [Suspect]
     Active Substance: EPOPROSTENOL SODIUM
     Dosage: UNK
  12. FLOLAN [Suspect]
     Active Substance: EPOPROSTENOL SODIUM
     Dosage: UNK (24 DF, UNK)
  13. FLOLAN [Suspect]
     Active Substance: EPOPROSTENOL SODIUM
     Indication: PULMONARY ARTERIAL HYPERTENSION
     Dosage: 2 NG/KG/MIN, CONCENTRATION AT 5000 NG/ML AND RATE OF 58 ML/DAY.
     Dates: start: 20120131
  14. FLOLAN [Suspect]
     Active Substance: EPOPROSTENOL SODIUM
     Dosage: UNK (24 NG/KG/MIN CONTINUOUSLY)
     Dates: start: 20120201
  15. FLOLAN [Suspect]
     Active Substance: EPOPROSTENOL SODIUM
     Dosage: UNK
     Dates: start: 20120131

REACTIONS (13)
  - Ear infection [Unknown]
  - Fatigue [Unknown]
  - Diarrhoea [Unknown]
  - Infusion site erythema [Unknown]
  - Thrombosis [Unknown]
  - Pneumonia [Unknown]
  - Abdominal distension [Unknown]
  - Tooth disorder [Recovered/Resolved]
  - Device related infection [Unknown]
  - Hypertension [Unknown]
  - Pain in jaw [Unknown]
  - Dyspnoea [Unknown]
  - Rash [Unknown]

NARRATIVE: CASE EVENT DATE: 20120202
